FAERS Safety Report 12439367 (Version 2)
Quarter: 2016Q2

REPORT INFORMATION
  Report Type: Spontaneous
  Country: US (occurrence: US)
  Receive Date: 20160606
  Receipt Date: 20160608
  Transmission Date: 20160815
  Serious: No
  Sender: FDA-Public Use
  Company Number: US-BAYER-2016-109505

PATIENT
  Age: 48 Year
  Sex: Female

DRUGS (2)
  1. MIRENA [Suspect]
     Active Substance: LEVONORGESTREL
     Indication: CONTRACEPTION
     Dosage: 20 MCG/24HR, CONT
     Route: 015
     Dates: start: 20160523, end: 20160523
  2. MIRENA [Suspect]
     Active Substance: LEVONORGESTREL
     Indication: CONTRACEPTION
     Dosage: 20 MCG/24HR, CONT
     Route: 015
     Dates: start: 20160602, end: 20160602

REACTIONS (6)
  - Syncope [None]
  - Device difficult to use [None]
  - Syncope [None]
  - Complication of device insertion [None]
  - Device difficult to use [None]
  - Complication of device insertion [None]

NARRATIVE: CASE EVENT DATE: 20160523
